FAERS Safety Report 4659340-3 (Version None)
Quarter: 2005Q2

REPORT INFORMATION
  Report Type: 
  Country: None (occurrence: None)
  Receive Date: 20050510
  Receipt Date: 20050428
  Transmission Date: 20051028
  Serious: Yes (Hospitalization)
  Sender: FDA-Public Use
  Company Number: 04P-028-0284290-03

PATIENT
  Age: 51 Year
  Sex: Female

DRUGS (6)
  1. NORVIR [Suspect]
     Indication: HIV INFECTION
     Dosage: 200 MG, 2 IN 1 D, PER ORAL
     Route: 048
     Dates: start: 20021211, end: 20040123
  2. DIDANOSINE [Concomitant]
  3. OLANZAPINE [Concomitant]
  4. TIPRANAVIR [Concomitant]
  5. TENOFOVIR [Concomitant]
  6. IMODIUM [Concomitant]

REACTIONS (9)
  - ABDOMINAL DISTENSION [None]
  - CONSTIPATION [None]
  - FANCONI SYNDROME [None]
  - HYPERTENSIVE ENCEPHALOPATHY [None]
  - LEUKOENCEPHALOPATHY [None]
  - LOSS OF CONSCIOUSNESS [None]
  - RENAL TUBULAR ACIDOSIS [None]
  - URINARY TRACT INFECTION [None]
  - VOMITING [None]
